FAERS Safety Report 6526704-2 (Version None)
Quarter: 2009Q4

REPORT INFORMATION
  Report Type: 
  Country: None (occurrence: None)
  Receive Date: 20091214
  Receipt Date: 20091012
  Transmission Date: 20100525
  Serious: Yes (Hospitalization)
  Sender: FDA-Public Use
  Company Number: 662311

PATIENT
  Age: 65 Year
  Sex: Male

DRUGS (2)
  1. PEGASYS [Suspect]
     Indication: HEPATITIS C
     Dosage: 180 UG 1 PER WEEK SUBCUTANEOUS
     Route: 058
     Dates: start: 20090601, end: 20090914
  2. RIBAVIRIN [Suspect]
     Indication: HEPATITIS C
     Dates: start: 20090601, end: 20090914

REACTIONS (10)
  - ABDOMINAL DISTENSION [None]
  - ALOPECIA [None]
  - CHEST PAIN [None]
  - DRY EYE [None]
  - DYSGEUSIA [None]
  - DYSPNOEA [None]
  - INFLUENZA LIKE ILLNESS [None]
  - INSOMNIA [None]
  - NAUSEA [None]
  - VISION BLURRED [None]
